FAERS Safety Report 10094836 (Version 3)
Quarter: 2014Q2

REPORT INFORMATION
  Report Type: Spontaneous
  Country: US (occurrence: US)
  Receive Date: 20140422
  Receipt Date: 20140531
  Transmission Date: 20141212
  Serious: Yes (Hospitalization)
  Sender: FDA-Public Use
  Company Number: 2014SP002107

PATIENT
  Sex: Male
  Weight: 63.1 kg

DRUGS (7)
  1. FLUOROURACIL [Suspect]
     Indication: ADENOCARCINOMA OF COLON
     Route: 042
  2. FLUOROURACIL [Suspect]
     Indication: ADENOCARCINOMA OF COLON
     Route: 042
     Dates: end: 201403
  3. OXALIPLATIN [Suspect]
     Indication: ADENOCARCINOMA OF COLON
     Route: 042
     Dates: end: 201203
  4. LEUCOVORIN /00566702/ [Suspect]
     Indication: ADENOCARCINOMA OF COLON
     Route: 042
  5. CELECOXIB [Suspect]
     Indication: ADENOCARCINOMA OF COLON
     Route: 048
     Dates: end: 20140323
  6. LOMOTIL [Suspect]
  7. LOPERAMIDE HYDROCHLORIDE [Suspect]

REACTIONS (7)
  - Neutropenia [Recovered/Resolved]
  - Renal failure [Not Recovered/Not Resolved]
  - Blood creatinine increased [Recovered/Resolved]
  - Blood albumin decreased [Not Recovered/Not Resolved]
  - Diarrhoea [Not Recovered/Not Resolved]
  - Dehydration [Not Recovered/Not Resolved]
  - Hypokalaemia [Not Recovered/Not Resolved]
